FAERS Safety Report 13283946 (Version 1)
Quarter: 2017Q1

REPORT INFORMATION
  Report Type: Spontaneous
  Country: FR (occurrence: FR)
  Receive Date: 20170301
  Receipt Date: 20170301
  Transmission Date: 20170428
  Serious: Yes (Hospitalization, Congenital Anomaly, Other)
  Sender: FDA-Public Use
  Company Number: FR-PFIZER INC-2017077769

PATIENT
  Sex: Female
  Weight: 3.39 kg

DRUGS (4)
  1. ZYPREXA [Suspect]
     Active Substance: OLANZAPINE
     Indication: SCHIZOPHRENIA
     Dosage: 10 MG, 1X/DAY
     Route: 064
     Dates: start: 20140930, end: 20150624
  2. ZOLOFT [Suspect]
     Active Substance: SERTRALINE HYDROCHLORIDE
     Dosage: 50 MG, 1X/DAY
     Route: 064
     Dates: start: 20140930, end: 20150624
  3. NOZINAN /00038601/ [Suspect]
     Active Substance: LEVOMEPROMAZINE
     Indication: SCHIZOPHRENIA
     Dosage: 25 MG, 1X/DAY
     Route: 064
     Dates: start: 20140930, end: 20150624
  4. TRANXENE T-TAB [Suspect]
     Active Substance: CLORAZEPATE DIPOTASSIUM
     Indication: SCHIZOPHRENIA
     Dosage: 40 MG, 1X/DAY
     Route: 064
     Dates: start: 20140930, end: 20150624

REACTIONS (11)
  - Hypotonia neonatal [Recovered/Resolved]
  - Ventricular septal defect [Recovered/Resolved]
  - Escherichia infection [Recovered/Resolved]
  - Maternal exposure during pregnancy [Recovered/Resolved]
  - Neonatal respiratory distress syndrome [Recovered/Resolved]
  - Withdrawal syndrome [Recovered/Resolved]
  - Anaemia neonatal [Recovered/Resolved]
  - Jaundice neonatal [Recovered/Resolved]
  - Gastrooesophageal reflux disease [Recovered/Resolved]
  - Selective eating disorder [Recovered/Resolved]
  - Meconium in amniotic fluid [Unknown]

NARRATIVE: CASE EVENT DATE: 2015
